FAERS Safety Report 10078997 (Version 2)
Quarter: 2014Q2

REPORT INFORMATION
  Report Type: Spontaneous
  Country: IT (occurrence: IT)
  Receive Date: 20140415
  Receipt Date: 20140415
  Transmission Date: 20141212
  Serious: Yes (Other)
  Sender: FDA-Public Use
  Company Number: IT-BAYER-2014-018833

PATIENT
  Age: 61 Year
  Sex: Male

DRUGS (1)
  1. CIPROXIN RM [Suspect]
     Indication: PROSTATITIS
     Dosage: 1000 MG, DAILY DOSE
     Route: 048
     Dates: start: 20131218, end: 20131226

REACTIONS (1)
  - Rectal haemorrhage [Recovered/Resolved]
